FAERS Safety Report 8260025-5 (Version None)
Quarter: 2012Q2

REPORT INFORMATION
  Report Type: 
  Country: None (occurrence: None)
  Receive Date: 20120404
  Receipt Date: 20120328
  Transmission Date: 20120825
  Serious: Yes (Other)
  Sender: FDA-Public Use
  Company Number: BE-PFIZER INC-2012080397

PATIENT

DRUGS (1)
  1. MEDROL [Suspect]
     Dosage: UNK

REACTIONS (1)
  - OSTEONECROSIS [None]
